FAERS Safety Report 7555983-8 (Version None)
Quarter: 2011Q2

REPORT INFORMATION
  Report Type: 
  Country: None (occurrence: None)
  Receive Date: 20110619
  Receipt Date: 20110525
  Transmission Date: 20111010
  Serious: No
  Sender: FDA-Public Use
  Company Number: US-ROXANE LABORATORIES, INC.-2011-RO-00734RO

PATIENT
  Sex: Female

DRUGS (1)
  1. MORPHINE [Suspect]

REACTIONS (2)
  - DRUG LEVEL INCREASED [None]
  - MALAISE [None]
